FAERS Safety Report 6735664-0 (Version None)
Quarter: 2010Q2

REPORT INFORMATION
  Report Type: 
  Country: None (occurrence: None)
  Receive Date: 20100521
  Receipt Date: 20100519
  Transmission Date: 20101027
  Serious: Yes (Death, Hospitalization, Other)
  Sender: FDA-Public Use
  Company Number: PHHY2009CA00682

PATIENT
  Sex: Male

DRUGS (3)
  1. SANDOSTATIN LAR [Suspect]
     Indication: NEUROENDOCRINE TUMOUR
     Dosage: 20 MG EVERY 4 WEEKS
     Route: 030
     Dates: start: 20050726
  2. SANDOSTATIN LAR [Suspect]
     Indication: METASTASES TO PERITONEUM
  3. SANDOSTATIN [Suspect]
     Route: 058

REACTIONS (15)
  - BLOOD PRESSURE INCREASED [None]
  - BODY TEMPERATURE DECREASED [None]
  - DIARRHOEA [None]
  - FALL [None]
  - HIP SURGERY [None]
  - INTESTINAL OBSTRUCTION [None]
  - LUNG OPERATION [None]
  - MALAISE [None]
  - PLEURAL EFFUSION [None]
  - PNEUMONIA [None]
  - POST PROCEDURAL COMPLICATION [None]
  - RESPIRATORY DISORDER [None]
  - THORACIC CAVITY DRAINAGE [None]
  - UPPER LIMB FRACTURE [None]
  - VOMITING [None]
